FAERS Safety Report 10485754 (Version 3)
Quarter: 2015Q2

REPORT INFORMATION
  Report Type: Spontaneous
  Country: FR (occurrence: FR)
  Receive Date: 20141001
  Receipt Date: 20150421
  Transmission Date: 20150821
  Serious: Yes (Other)
  Sender: FDA-Public Use
  Company Number: FR-IPSEN BIOPHARMACEUTICALS, INC.-2013-1780

PATIENT
  Age: 66 Year
  Sex: Male
  Weight: 77 kg

DRUGS (5)
  1. SIMVASTATINE [Concomitant]
     Active Substance: SIMVASTATIN
     Indication: PRODUCT USED FOR UNKNOWN INDICATION
     Route: 065
     Dates: start: 2000
  2. SOMATULINE L.P. 120MG [Suspect]
     Active Substance: LANREOTIDE ACETATE
     Indication: CARCINOID SYNDROME
     Dosage: 120 MG
     Route: 058
     Dates: start: 201209
  3. GLICLAZIDE [Concomitant]
     Active Substance: GLICLAZIDE
     Indication: PRODUCT USED FOR UNKNOWN INDICATION
     Route: 065
     Dates: start: 2011
  4. ENALAPRIL [Concomitant]
     Active Substance: ENALAPRIL
     Indication: PRODUCT USED FOR UNKNOWN INDICATION
     Route: 065
     Dates: start: 2000
  5. ALLOPURINOL. [Concomitant]
     Active Substance: ALLOPURINOL
     Indication: PRODUCT USED FOR UNKNOWN INDICATION
     Route: 065
     Dates: start: 2000

REACTIONS (5)
  - Disease progression [Not Recovered/Not Resolved]
  - Dumping syndrome [Not Recovered/Not Resolved]
  - Drug ineffective [Unknown]
  - Hypersensitivity [Not Recovered/Not Resolved]
  - Inappropriate schedule of drug administration [Unknown]

NARRATIVE: CASE EVENT DATE: 20130424
